FAERS Safety Report 8715007 (Version 2)
Quarter: 2012Q4

REPORT INFORMATION
  Report Type: 
  Country: US (occurrence: US)
  Receive Date: 20120809
  Receipt Date: 20120914
  Transmission Date: 20130627
  Serious: Yes (Other)
  Sender: FDA-Public Use
  Company Number: US-JNJFOC-20120802348

PATIENT
  Age: 48 None
  Sex: Female
  Weight: 111.13 kg

DRUGS (6)
  1. FENTANYL [Suspect]
     Indication: THORACIC OUTLET SYNDROME
     Route: 062
  2. FENTANYL [Suspect]
     Indication: COMPLEX REGIONAL PAIN SYNDROME
     Route: 062
  3. FENTANYL TRANSDERMAL SYSTEM [Suspect]
     Indication: THORACIC OUTLET SYNDROME
     Route: 062
  4. FENTANYL TRANSDERMAL SYSTEM [Suspect]
     Indication: COMPLEX REGIONAL PAIN SYNDROME
     Route: 062
  5. INSULIN [Concomitant]
     Indication: DIABETES MELLITUS
     Route: 058
  6. MORPHINE [Concomitant]
     Indication: BREAKTHROUGH PAIN
     Dosage: as needed
     Route: 048

REACTIONS (3)
  - Complex regional pain syndrome [Recovered/Resolved]
  - Carpal tunnel syndrome [Not Recovered/Not Resolved]
  - Application site pruritus [Not Recovered/Not Resolved]
